FAERS Safety Report 5288754-6 (Version None)
Quarter: 2007Q2

REPORT INFORMATION
  Report Type: 
  Country: None (occurrence: None)
  Receive Date: 20070405
  Receipt Date: 20070405
  Transmission Date: 20071010
  Serious: Yes (Life-Threatening)
  Sender: FDA-Public Use
  Company Number: DE-BOEHRINGER INGELHEIM GMBH, GERMANY-2007-DE-01749DE

PATIENT
  Sex: Male
  Weight: 75 kg

DRUGS (7)
  1. CLONIDINE [Suspect]
     Indication: MYRINGOPLASTY
     Route: 042
  2. DESFLURANE [Suspect]
     Indication: MYRINGOPLASTY
     Dosage: 4, 6, 12 OR 2 VOL%
     Route: 042
  3. PROPRANOLOL [Suspect]
     Indication: MYRINGOPLASTY
     Route: 042
  4. DHBP [Suspect]
     Indication: MYRINGOPLASTY
     Route: 042
  5. PROPOFOL [Concomitant]
     Route: 042
  6. ISOPRIVAN [Concomitant]
  7. REMIFENTANIL [Concomitant]
     Route: 042

REACTIONS (4)
  - APALLIC SYNDROME [None]
  - BRADYCARDIA [None]
  - CARDIAC ARREST [None]
  - OXYGEN SATURATION DECREASED [None]
